FAERS Safety Report 8780976 (Version 1)
Quarter: 2012Q4

REPORT INFORMATION
  Report Type: 
  Country: AU (occurrence: AU)
  Receive Date: 20120913
  Receipt Date: 20120913
  Transmission Date: 20130627
  Serious: Yes (Disabling)
  Sender: FDA-Public Use
  Company Number: AU-PFIZER INC-2012196144

PATIENT
  Sex: Female

DRUGS (9)
  1. LYRICA [Suspect]
     Indication: NEURALGIA
     Dosage: 75 mg, 2x/day
     Route: 048
     Dates: start: 20100401, end: 20100525
  2. ESCITALOPRAM [Concomitant]
     Indication: DEPRESSION
  3. MERSYNDOL FORTE [Concomitant]
     Indication: PAIN
  4. NEXIUM [Concomitant]
     Indication: GASTROOESOPHAGEAL REFLUX DISEASE
  5. SERETIDE [Concomitant]
     Indication: ASTHMA
  6. SERETIDE [Concomitant]
     Indication: CHRONIC OBSTRUCTIVE PULMONARY DISEASE
  7. VENTOLIN [Concomitant]
     Indication: ASTHMA
  8. VENTOLIN [Concomitant]
     Indication: CHRONIC OBSTRUCTIVE PULMONARY DISEASE
  9. SANDOMIGRAN [Concomitant]
     Indication: MIGRAINE

REACTIONS (2)
  - Aggression [Recovered/Resolved]
  - Drug ineffective [Recovered/Resolved]
